FAERS Safety Report 14574280 (Version 1)
Quarter: 2018Q1

REPORT INFORMATION
  Report Type: Spontaneous
  Country: US (occurrence: US)
  Receive Date: 20180226
  Receipt Date: 20180226
  Transmission Date: 20180509
  Serious: No
  Sender: FDA-Public Use
  Company Number: US-LUNDBECK-DKLU2044426

PATIENT
  Age: 68 Year
  Sex: Female

DRUGS (1)
  1. NORTHERA [Suspect]
     Active Substance: DROXIDOPA
     Indication: MULTIPLE SCLEROSIS
     Dosage: D, CUSTOM TITRATION, STILL TITRATING
     Route: 048
     Dates: start: 20180216

REACTIONS (2)
  - Hypoaesthesia [Unknown]
  - Headache [Unknown]

NARRATIVE: CASE EVENT DATE: 20180216
